FAERS Safety Report 4673040-5 (Version None)
Quarter: 2005Q2

REPORT INFORMATION
  Report Type: 
  Country: None (occurrence: None)
  Receive Date: 20050523
  Receipt Date: 20050506
  Transmission Date: 20051028
  Serious: Yes (Other)
  Sender: FDA-Public Use
  Company Number: L05-JPN-01720-01

PATIENT
  Age: 20 Year
  Sex: Male

DRUGS (1)
  1. CARBAMAZEPINE [Suspect]
     Indication: CONDUCT DISORDER
     Dosage: 600 MG QD

REACTIONS (1)
  - GRAND MAL CONVULSION [None]
